FAERS Safety Report 7653600-X (Version None)
Quarter: 2011Q3

REPORT INFORMATION
  Report Type: 
  Country: None (occurrence: None)
  Receive Date: 20110803
  Receipt Date: 20110719
  Transmission Date: 20111222
  Serious: Yes (Hospitalization)
  Sender: FDA-Public Use
  Company Number: US-JUTA GMBH-2011-10147

PATIENT
  Sex: Female
  Weight: 70.4 kg

DRUGS (1)
  1. DOXYCYCLINE HYCLATE [Suspect]
     Indication: FURUNCLE
     Dosage: 100 MG, BID
     Route: 048
     Dates: start: 20100908, end: 20100915

REACTIONS (2)
  - BLOOD PRESSURE INCREASED [None]
  - DIZZINESS [None]
